FAERS Safety Report 7371115-3 (Version None)
Quarter: 2011Q1

REPORT INFORMATION
  Report Type: 
  Country: None (occurrence: None)
  Receive Date: 20110324
  Receipt Date: 20101004
  Transmission Date: 20110831
  Serious: Yes (Hospitalization)
  Sender: FDA-Public Use
  Company Number: US-BAYER-201016117NA

PATIENT
  Sex: Female
  Weight: 131 kg

DRUGS (23)
  1. METFORMIN [Concomitant]
  2. AUGMENTIN '125' [Concomitant]
  3. DICYCLOMINE [Concomitant]
  4. AMOXICILLIN [Concomitant]
  5. SINGULAIR [Concomitant]
  6. OXYCODONE [Concomitant]
  7. LIPITOR [Concomitant]
  8. SPIRONOLACTONE [Concomitant]
  9. LEVAQUIN [Concomitant]
  10. FLUTICASONE PROPIONATE [Concomitant]
  11. FISH OIL [Concomitant]
     Dosage: UNK
     Dates: start: 20080218
  12. YASMIN [Suspect]
     Indication: PRODUCT USED FOR UNKNOWN INDICATION
     Route: 048
     Dates: start: 20041210, end: 20080102
  13. OCELLA [Suspect]
     Indication: PRODUCT USED FOR UNKNOWN INDICATION
     Dosage: UNK
     Dates: start: 20080901, end: 20090201
  14. IBUPROFEN [Concomitant]
  15. AMOXICILLIN AND CLAVULANATE POTASSIUM [Concomitant]
  16. PERCOCET [Concomitant]
  17. HYDROCODONE BITARTRATE [Concomitant]
  18. PROMETHEGAN [Concomitant]
  19. FLONASE [Concomitant]
  20. PREVACID [Concomitant]
     Indication: GASTROOESOPHAGEAL REFLUX DISEASE
  21. MULTI-VITAMINS [Concomitant]
     Dosage: UNK
     Dates: start: 20080218
  22. BIAXIN XL [Concomitant]
  23. ACIDOPHILUS [Concomitant]

REACTIONS (6)
  - MENTAL DISORDER [None]
  - ABDOMINAL PAIN [None]
  - GALLBLADDER CHOLESTEROLOSIS [None]
  - CHOLECYSTITIS CHRONIC [None]
  - ABDOMINAL PAIN UPPER [None]
  - CHOLELITHIASIS [None]
